FAERS Safety Report 9771822 (Version 1)
Quarter: 2013Q4

REPORT INFORMATION
  Report Type: Report from Study
  Country: IL (occurrence: IL)
  Receive Date: 20131219
  Receipt Date: 20131219
  Transmission Date: 20140711
  Serious: Yes (Hospitalization)
  Sender: FDA-Public Use
  Company Number: PHHY2013IL145638

PATIENT
  Age: 59 Year
  Sex: Male

DRUGS (2)
  1. SANDOSTATIN LAR [Suspect]
     Indication: CARCINOID TUMOUR
     Dosage: 60 MG, Q4W
     Route: 030
     Dates: start: 20121210
  2. SANDOSTATIN LAR [Suspect]
     Dosage: 60 MG, Q4W
     Route: 030
     Dates: start: 20131209

REACTIONS (4)
  - Anxiety [Unknown]
  - Asthenia [Unknown]
  - Cold sweat [Unknown]
  - Aphonia [Unknown]
